FAERS Safety Report 9216003 (Version 3)
Quarter: 2013Q2

REPORT INFORMATION
  Report Type: Spontaneous
  Country: US (occurrence: US)
  Receive Date: 20130408
  Receipt Date: 20130507
  Transmission Date: 20140414
  Serious: Yes (Other)
  Sender: FDA-Public Use
  Company Number: US-JNJFOC-20130319015

PATIENT
  Age: 72 Year
  Sex: Female
  Weight: 72.58 kg

DRUGS (6)
  1. ZYRTEC IR [Suspect]
     Route: 048
  2. ZYRTEC IR [Suspect]
     Indication: MULTIPLE ALLERGIES
     Route: 048
     Dates: start: 20130327
  3. GABAPENTIN [Concomitant]
     Indication: SLEEP DISORDER THERAPY
     Dosage: 100MG/ 1 TABLET 8 MONTHS
     Route: 065
     Dates: start: 201207
  4. GABAPENTIN [Concomitant]
     Indication: PAIN
     Dosage: 100MG/ 1 TABLET 8 MONTHS
     Route: 065
     Dates: start: 201207
  5. DIOVAN [Concomitant]
     Indication: BLOOD PRESSURE
     Route: 065
  6. TUMS [Concomitant]
     Indication: BLOOD CALCIUM
     Route: 065

REACTIONS (6)
  - Paraesthesia [Recovered/Resolved]
  - Palpitations [Recovered/Resolved]
  - Heart rate increased [Recovered/Resolved]
  - Somnolence [Recovered/Resolved]
  - Insomnia [Recovered/Resolved]
  - Drug administered to patient of inappropriate age [Unknown]
